FAERS Safety Report 20197075 (Version 1)
Quarter: 2021Q4

REPORT INFORMATION
  Report Type: Spontaneous
  Country: CL (occurrence: CL)
  Receive Date: 20211217
  Receipt Date: 20211217
  Transmission Date: 20220303
  Serious: Yes (Life-Threatening, Hospitalization, Other)
  Sender: FDA-Public Use
  Company Number: None

PATIENT
  Age: 36 Year
  Sex: Male

DRUGS (9)
  1. QUETIAPINE FUMARATE [Suspect]
     Active Substance: QUETIAPINE FUMARATE
     Indication: Delirium
     Dosage: 600 MILLIGRAM, QD
     Route: 065
  2. HALOPERIDOL [Suspect]
     Active Substance: HALOPERIDOL
     Indication: Delirium
     Dosage: 20 MILLIGRAM, QD
     Route: 065
  3. RISPERIDONE [Suspect]
     Active Substance: RISPERIDONE
     Indication: Delirium
     Dosage: 3 MILLIGRAM, QD
     Route: 065
  4. Bisoprolol [Bisoprolol] [Concomitant]
     Indication: Product used for unknown indication
     Dosage: UNK
     Route: 065
  5. Clonidine [Clonidine] [Concomitant]
     Indication: Product used for unknown indication
     Dosage: UNK
     Route: 065
  6. Dexmedetomidine [Dexmedetomidine] [Concomitant]
     Indication: Product used for unknown indication
     Dosage: UNK
     Route: 065
  7. Fentanyl [Fentanyl] [Concomitant]
     Indication: Sedation
     Dosage: UNK
     Route: 065
  8. Midazolam [Midazolam] [Concomitant]
     Indication: Sedation
     Dosage: UNK
     Route: 065
  9. Propofol [Propofol] [Concomitant]
     Indication: Sedation
     Dosage: UNK
     Route: 065

REACTIONS (1)
  - Malignant catatonia [Recovered/Resolved]
